FAERS Safety Report 17828054 (Version 1)
Quarter: 2020Q2

REPORT INFORMATION
  Report Type: Spontaneous
  Country: US (occurrence: US)
  Receive Date: 20200527
  Receipt Date: 20200527
  Transmission Date: 20200714
  Serious: No
  Sender: FDA-Public Use
  Company Number: US-MYLANLABS-2020M1050962

PATIENT
  Age: 76 Year
  Sex: Male

DRUGS (2)
  1. WIXELA INHUB [Suspect]
     Active Substance: FLUTICASONE PROPIONATE\SALMETEROL XINAFOATE
     Indication: DYSPNOEA
     Dosage: 250/50 MCG, BID
     Route: 055
     Dates: start: 20200518
  2. WIXELA INHUB [Suspect]
     Active Substance: FLUTICASONE PROPIONATE\SALMETEROL XINAFOATE
     Indication: BRONCHITIS VIRAL

REACTIONS (3)
  - Off label use [Not Recovered/Not Resolved]
  - Product quality issue [Unknown]
  - Wrong technique in device usage process [Not Recovered/Not Resolved]

NARRATIVE: CASE EVENT DATE: 202005
